FAERS Safety Report 5441188-3 (Version None)
Quarter: 2007Q3

REPORT INFORMATION
  Report Type: 
  Country: None (occurrence: None)
  Receive Date: 20070901
  Receipt Date: 20070822
  Transmission Date: 20080115
  Serious: Yes (Other)
  Sender: FDA-Public Use
  Company Number: US-PFIZER INC-2007070018

PATIENT
  Sex: Female
  Weight: 54.545 kg

DRUGS (1)
  1. PREDNISONE [Suspect]
     Indication: DEAFNESS
     Dosage: TEXT:60MG
     Dates: start: 20070101, end: 20070101

REACTIONS (6)
  - DEPRESSED MOOD [None]
  - GENERAL PHYSICAL HEALTH DETERIORATION [None]
  - HALLUCINATION [None]
  - INTESTINAL PERFORATION [None]
  - MALABSORPTION [None]
  - POST HERPETIC NEURALGIA [None]
